FAERS Safety Report 6756725-6 (Version None)
Quarter: 2010Q2

REPORT INFORMATION
  Report Type: 
  Country: None (occurrence: None)
  Receive Date: 20100604
  Receipt Date: 20100526
  Transmission Date: 20101027
  Serious: Yes (Hospitalization)
  Sender: FDA-Public Use
  Company Number: FR-ABBOTT-10P-056-0647342-00

PATIENT
  Sex: Female

DRUGS (4)
  1. MONOZECLAR [Suspect]
     Indication: BRONCHITIS
     Route: 048
     Dates: start: 20090109, end: 20090114
  2. AMLOR [Concomitant]
     Indication: HYPERTENSION
     Route: 048
  3. AVLOCARDYL [Concomitant]
     Indication: HYPERTENSION
     Route: 048
  4. LANSOPRAZOLE [Concomitant]
     Indication: DRUG USE FOR UNKNOWN INDICATION
     Route: 048

REACTIONS (3)
  - AFFECTIVE DISORDER [None]
  - DELIRIUM [None]
  - HALLUCINATION [None]
